FAERS Safety Report 18187591 (Version 6)
Quarter: 2020Q4

REPORT INFORMATION
  Report Type: Report from Study
  Country: US (occurrence: US)
  Receive Date: 20200824
  Receipt Date: 20201209
  Transmission Date: 20210113
  Serious: Yes (Other)
  Sender: FDA-Public Use
  Company Number: US-GLAXOSMITHKLINE-US2020AMR153920

PATIENT
  Age: 77 Year
  Sex: Female
  Weight: 67.58 kg

DRUGS (5)
  1. PREDNISONE. [Suspect]
     Active Substance: PREDNISONE
     Indication: ARTHRALGIA
     Dosage: UNK
  2. NIRAPARIB [Suspect]
     Active Substance: NIRAPARIB
     Indication: OVARIAN CANCER
     Dosage: 200 MG, QD
     Dates: start: 20200803
  3. NIRAPARIB [Suspect]
     Active Substance: NIRAPARIB
     Dosage: 200 MG, QD
     Dates: start: 20201118, end: 20201201
  4. NIRAPARIB [Suspect]
     Active Substance: NIRAPARIB
     Dosage: 200 MG, QD
     Dates: start: 20201005, end: 20201013
  5. PREDNISONE. [Suspect]
     Active Substance: PREDNISONE
     Indication: GOUT

REACTIONS (12)
  - Neuropathy peripheral [Unknown]
  - Insomnia [Recovered/Resolved]
  - Fatigue [Unknown]
  - Dizziness [Unknown]
  - Gout [Unknown]
  - Hot flush [Unknown]
  - Decreased activity [Unknown]
  - Hypertension [Recovering/Resolving]
  - White blood cell count increased [Unknown]
  - Drug ineffective [Unknown]
  - Constipation [Unknown]
  - Computerised tomogram abnormal [Unknown]

NARRATIVE: CASE EVENT DATE: 20201201
